FAERS Safety Report 8431086 (Version 2)
Quarter: 2012Q4

REPORT INFORMATION
  Report Type: 
  Country: FR (occurrence: FR)
  Receive Date: 20120228
  Receipt Date: 20121017
  Transmission Date: 20130627
  Serious: Yes (Hospitalization, Other)
  Sender: FDA-Public Use
  Company Number: FR-ABBOTT-12P-056-0906949-00

PATIENT
  Age: 45 None
  Sex: Male

DRUGS (1)
  1. HUMIRA 40 MG/ 0.8 ML PRE-FILLED SYRINGE [Suspect]
     Indication: ANKYLOSING SPONDYLITIS
     Route: 058
     Dates: start: 201005, end: 20111107

REACTIONS (8)
  - Deep vein thrombosis [Recovered/Resolved]
  - Antiphospholipid antibodies positive [Not Recovered/Not Resolved]
  - Idiopathic thrombocytopenic purpura [Unknown]
  - Autoantibody positive [Unknown]
  - Antiphospholipid antibodies positive [Unknown]
  - Cardiolipin antibody positive [Unknown]
  - Antinuclear antibody positive [Unknown]
  - DNA antibody positive [Unknown]
